FAERS Safety Report 20058731 (Version 7)
Quarter: 2022Q3

REPORT INFORMATION
  Report Type: Report from Study
  Country: US (occurrence: US)
  Receive Date: 20211111
  Receipt Date: 20220916
  Transmission Date: 20221027
  Serious: No
  Sender: FDA-Public Use
  Company Number: US-NOVARTISTESTPH-NVSC2021US258658

PATIENT
  Age: 44 Year
  Sex: Female

DRUGS (4)
  1. KESIMPTA [Suspect]
     Active Substance: OFATUMUMAB
     Indication: Relapsing-remitting multiple sclerosis
     Dosage: 20 MG, QOD
     Route: 058
     Dates: start: 20211110
  2. KESIMPTA [Suspect]
     Active Substance: OFATUMUMAB
     Dosage: 20MG/0.4ML, AS DIRECTED
     Route: 058
  3. KESIMPTA [Suspect]
     Active Substance: OFATUMUMAB
     Dosage: 20 MG, QMO
     Route: 058
  4. LEXAPRO [Concomitant]
     Active Substance: ESCITALOPRAM OXALATE
     Indication: Product used for unknown indication
     Dosage: UNK
     Route: 065

REACTIONS (7)
  - Pain [Recovered/Resolved]
  - COVID-19 [Recovered/Resolved]
  - Migraine [Recovered/Resolved]
  - Pyrexia [Recovered/Resolved]
  - Feeling abnormal [Recovering/Resolving]
  - Influenza like illness [Unknown]
  - Headache [Unknown]

NARRATIVE: CASE EVENT DATE: 20211110
